FAERS Safety Report 5299197-3 (Version None)
Quarter: 2007Q2

REPORT INFORMATION
  Report Type: 
  Country: None (occurrence: None)
  Receive Date: 20070410
  Receipt Date: 20070329
  Transmission Date: 20071010
  Serious: Yes (Other)
  Sender: FDA-Public Use
  Company Number: 2007-156592-NL

PATIENT
  Age: 85 Year
  Sex: Female
  Weight: 40.8 kg

DRUGS (1)
  1. ZEMURON [Suspect]
     Indication: MUSCLE RELAXANT THERAPY
     Dosage: 40 MG

REACTIONS (1)
  - DRUG EFFECT PROLONGED [None]
